FAERS Safety Report 8925854 (Version 1)
Quarter: 2012Q4

REPORT INFORMATION
  Report Type: 
  Country: AU (occurrence: AU)
  Receive Date: 20121126
  Receipt Date: 20121126
  Transmission Date: 20130627
  Serious: Yes (Hospitalization, Other)
  Sender: FDA-Public Use
  Company Number: PHHY2012AU106832

PATIENT
  Age: 41 Year
  Sex: Male

DRUGS (1)
  1. CLOZARIL [Suspect]
     Dosage: UNK
     Dates: end: 20121110

REACTIONS (4)
  - Musculoskeletal stiffness [Unknown]
  - Blood creatine phosphokinase increased [Recovering/Resolving]
  - Pneumonia [Unknown]
  - Pyrexia [Unknown]
